FAERS Safety Report 4530454-1 (Version None)
Quarter: 2004Q4

REPORT INFORMATION
  Report Type: 
  Country: None (occurrence: None)
  Receive Date: 20041215
  Receipt Date: 20041130
  Transmission Date: 20050328
  Serious: No
  Sender: FDA-Public Use
  Company Number: 2004AL001733

PATIENT
  Age: 62 Year
  Sex: Female
  Weight: 101.6057 kg

DRUGS (5)
  1. ETODOLAC [Suspect]
     Indication: ARTHRITIS
     Dosage: 400 MG; QD; PO
     Route: 048
     Dates: start: 20041101, end: 20041101
  2. HYZAAR [Concomitant]
  3. WELLBUTRIN [Concomitant]
  4. NAPROXEN [Concomitant]
  5. MULTI-VITAMINS [Concomitant]

REACTIONS (4)
  - CARDIAC DISORDER [None]
  - DYSPEPSIA [None]
  - EROSIVE OESOPHAGITIS [None]
  - GASTRIC HAEMORRHAGE [None]
